FAERS Safety Report 11112111 (Version 2)
Quarter: 2015Q2

REPORT INFORMATION
  Report Type: Spontaneous
  Country: US (occurrence: None)
  Receive Date: 20150512
  Receipt Date: 20150528
  Transmission Date: 20150821
  Serious: Yes (Hospitalization, Other)
  Sender: FDA-Public Use
  Company Number: 2015SCAL000182

PATIENT
  Age: 85 Year
  Sex: Male

DRUGS (2)
  1. ASPIRIN  (ACETYLSALICYLIC ACID) [Suspect]
     Active Substance: ASPIRIN
     Indication: CORONARY ARTERY DISEASE
  2. DONEPEZIL HYDROCHLORIDE (DONEPEZIL HYDROCHLORIDE) UNKNOWN [Suspect]
     Active Substance: DONEPEZIL HYDROCHLORIDE
     Indication: DEMENTIA ALZHEIMER^S TYPE

REACTIONS (9)
  - Erosive oesophagitis [None]
  - Shock haemorrhagic [None]
  - Gastric ulcer [None]
  - Oesophageal ulcer [None]
  - Gastrointestinal haemorrhage [None]
  - Erosive duodenitis [None]
  - Duodenal ulcer [None]
  - Duodenal ulcer haemorrhage [None]
  - Gastritis erosive [None]
